FAERS Safety Report 12393486 (Version 1)
Quarter: 2016Q2

REPORT INFORMATION
  Report Type: Spontaneous
  Country: US (occurrence: None)
  Receive Date: 20160520
  Receipt Date: 20160520
  Transmission Date: 20160815
  Serious: Yes (Disabling)
  Sender: FDA-Public Use
  Company Number: None

PATIENT
  Age: 42 Year
  Sex: Male
  Weight: 77.11 kg

DRUGS (3)
  1. MIDODRINE [Concomitant]
     Active Substance: MIDODRINE
  2. MOTRIN [Concomitant]
     Active Substance: IBUPROFEN
  3. CIPROFLOXACIN, 500 MG [Suspect]
     Active Substance: CIPROFLOXACIN
     Indication: PROSTATITIS
     Route: 048
     Dates: start: 20111224, end: 20160107

REACTIONS (26)
  - Anxiety [None]
  - Dry eye [None]
  - Ligament rupture [None]
  - Quality of life decreased [None]
  - Pain in extremity [None]
  - Dry skin [None]
  - Gingival bleeding [None]
  - Blood testosterone decreased [None]
  - Exercise tolerance decreased [None]
  - Arthralgia [None]
  - Speech disorder [None]
  - Myalgia [None]
  - Social anxiety disorder [None]
  - Pain [None]
  - Musculoskeletal pain [None]
  - Meniscus injury [None]
  - Blood cholesterol increased [None]
  - Feeling abnormal [None]
  - Tendon pain [None]
  - Autonomic nervous system imbalance [None]
  - Erectile dysfunction [None]
  - Libido decreased [None]
  - Food intolerance [None]
  - Dysgraphia [None]
  - Neck pain [None]
  - Temporomandibular joint syndrome [None]

NARRATIVE: CASE EVENT DATE: 20160101
